FAERS Safety Report 8718348 (Version 3)
Quarter: 2012Q4

REPORT INFORMATION
  Report Type: 
  Country: US (occurrence: US)
  Receive Date: 20120810
  Receipt Date: 20120831
  Transmission Date: 20130627
  Serious: Yes (Other)
  Sender: FDA-Public Use
  Company Number: CHPA2012US017189

PATIENT
  Sex: Male

DRUGS (4)
  1. NUPERCAINAL HEMORRHOIDAL/ANES OINTMENT [Suspect]
     Indication: SCRATCH
     Dosage: Unk, 2-4 times per day as needed
     Route: 061
  2. NUPERCAINAL HEMORRHOIDAL/ANES OINTMENT [Suspect]
     Dosage: Unk, Unk
     Route: 064
  3. DRUG THERAPY NOS [Concomitant]
  4. VASELINE [Concomitant]

REACTIONS (8)
  - Crohn^s disease [Recovered/Resolved]
  - Diarrhoea [Recovered/Resolved]
  - Hypoaesthesia [Unknown]
  - Therapeutic response unexpected [Unknown]
  - Off label use [Unknown]
  - Foetal exposure during pregnancy [Unknown]
  - Expired drug administered [Unknown]
  - Product quality issue [None]
